FAERS Safety Report 21309511 (Version 1)
Quarter: 2022Q3

REPORT INFORMATION
  Report Type: Spontaneous
  Country: US (occurrence: US)
  Receive Date: 20220908
  Receipt Date: 20220908
  Transmission Date: 20221027
  Serious: No
  Sender: FDA-Public Use
  Company Number: US-BRAINTREE LABORATORIES, INC.-2021BTE01005

PATIENT
  Age: 63 Year
  Sex: Female
  Weight: 56.236 kg

DRUGS (6)
  1. SUPREP BOWEL PREP [Suspect]
     Active Substance: MAGNESIUM SULFATE\POTASSIUM SULFATE\SODIUM SULFATE
     Indication: Colonoscopy
     Dosage: 1 X 6 OZ. BOTTLE, 1X
     Dates: start: 20211209
  2. MAGNESIUM CITRATE [Suspect]
     Active Substance: MAGNESIUM CITRATE
     Indication: Colonoscopy
     Dosage: UNK, ONCE
     Dates: start: 20211209, end: 20211209
  3. RESTORIL [Concomitant]
     Active Substance: TEMAZEPAM
  4. INDERAL [Concomitant]
     Active Substance: PROPRANOLOL HYDROCHLORIDE
     Dosage: UNK, AS NEEDED
  5. FLONASE [Concomitant]
     Active Substance: FLUTICASONE PROPIONATE
     Dosage: UNK, AS NEEDED
  6. DIETARY SUPPLEMENT\HERBALS [Concomitant]
     Active Substance: DIETARY SUPPLEMENT\HERBALS
     Dosage: UNK, AS NEEDED

REACTIONS (4)
  - Headache [Recovering/Resolving]
  - Feeling cold [Not Recovered/Not Resolved]
  - Abdominal distension [Not Recovered/Not Resolved]
  - Wrong technique in product usage process [Recovered/Resolved]

NARRATIVE: CASE EVENT DATE: 20211209
